FAERS Safety Report 5988480-1 (Version None)
Quarter: 2008Q4

REPORT INFORMATION
  Report Type: 
  Country: None (occurrence: None)
  Receive Date: 20081210
  Receipt Date: 20081201
  Transmission Date: 20090506
  Serious: Yes (Other)
  Sender: FDA-Public Use
  Company Number: US-ABBOTT-08P-163-0490628-00

PATIENT
  Sex: Male
  Weight: 99.88 kg

DRUGS (6)
  1. HUMIRA [Suspect]
     Indication: COLITIS ULCERATIVE
     Route: 058
     Dates: start: 20080701
  2. HUMIRA [Suspect]
     Route: 058
     Dates: start: 20080101, end: 20080101
  3. HUMIRA [Suspect]
     Route: 058
     Dates: start: 20080701, end: 20080701
  4. PREDNISONE TAB [Concomitant]
     Indication: CROHN'S DISEASE
  5. ASOCOL [Concomitant]
     Indication: CROHN'S DISEASE
     Route: 048
  6. UROCITK K [Concomitant]
     Indication: NEPHROLITHIASIS

REACTIONS (3)
  - DIARRHOEA HAEMORRHAGIC [None]
  - INCORRECT DOSE ADMINISTERED [None]
  - NEPHROLITHIASIS [None]
